FAERS Safety Report 24892753 (Version 1)
Quarter: 2025Q1

REPORT INFORMATION
  Report Type: Spontaneous
  Country: CO (occurrence: CO)
  Receive Date: 20250128
  Receipt Date: 20250128
  Transmission Date: 20250409
  Serious: Yes (Other)
  Sender: NOVO NORDISK
  Company Number: CO-NOVOPROD-1354162

PATIENT
  Age: 68 Year
  Sex: Female
  Weight: 78 kg

DRUGS (2)
  1. TRESIBA [Suspect]
     Active Substance: INSULIN DEGLUDEC
     Indication: Type 2 diabetes mellitus
     Dosage: 28 IU, QD
     Route: 058
     Dates: start: 20240801, end: 20250115
  2. INSULIN GLULISINE [Concomitant]
     Active Substance: INSULIN GLULISINE
     Indication: Type 2 diabetes mellitus
     Route: 058

REACTIONS (12)
  - Pneumonia [Unknown]
  - Blood cholesterol increased [Unknown]
  - Nail disorder [Recovering/Resolving]
  - Hyperhidrosis [Unknown]
  - Alopecia [Recovering/Resolving]
  - Vertigo [Unknown]
  - Ear pain [Unknown]
  - Immunodeficiency [Unknown]
  - Urinary incontinence [Unknown]
  - Somnolence [Unknown]
  - Asthenia [Unknown]
  - Glycosylated haemoglobin increased [Unknown]
